FAERS Safety Report 6973913-4 (Version None)
Quarter: 2010Q3

REPORT INFORMATION
  Report Type: 
  Country: None (occurrence: None)
  Receive Date: 20100909
  Receipt Date: 20100826
  Transmission Date: 20110219
  Serious: Yes (Hospitalization)
  Sender: FDA-Public Use
  Company Number: US-ELI_LILLY_AND_COMPANY-US201009000612

PATIENT
  Sex: Female

DRUGS (16)
  1. FORTEO [Suspect]
     Indication: OSTEOPOROSIS
     Dosage: 20 UG, DAILY (1/D)
     Dates: start: 20090901
  2. DIOVAN [Concomitant]
     Dosage: UNK, DAILY (1/D)
  3. JANUVIA [Concomitant]
     Dosage: UNK, DAILY (1/D)
  4. ASPIRIN [Concomitant]
     Dosage: UNK, DAILY (1/D)
  5. COREG [Concomitant]
     Dosage: UNK, DAILY (1/D)
  6. FOLIC ACID [Concomitant]
     Dosage: UNK, DAILY (1/D)
  7. GABAPENTIN [Concomitant]
     Dosage: UNK, 2/D
  8. NEXIUM [Concomitant]
     Dosage: UNK, DAILY (1/D)
  9. NORVASC [Concomitant]
  10. DITROPAN [Concomitant]
     Dosage: UNK, DAILY (1/D)
  11. PLAQUENIL [Concomitant]
     Dosage: UNK, 2/D
  12. SYNTHROID [Concomitant]
     Dosage: UNK, DAILY (1/D)
  13. SULFASALAZINE [Concomitant]
     Dosage: UNK, 2/D
  14. OSCAL D /06435501/ [Concomitant]
     Dosage: UNK, DAILY (1/D)
  15. PLAVIX [Concomitant]
     Dosage: UNK, DAILY (1/D)
  16. ZOCOR [Concomitant]
     Dosage: UNK, DAILY (1/D)

REACTIONS (2)
  - CEREBROVASCULAR ACCIDENT [None]
  - MOBILITY DECREASED [None]
